FAERS Safety Report 5856506-1 (Version None)
Quarter: 2008Q3

REPORT INFORMATION
  Report Type: 
  Country: None (occurrence: None)
  Receive Date: 20080825
  Receipt Date: 20080707
  Transmission Date: 20090109
  Serious: No
  Sender: FDA-Public Use
  Company Number: A0736248A

PATIENT
  Age: 13 Year
  Sex: Male

DRUGS (2)
  1. VERAMYST [Suspect]
     Dosage: 27.5MCG PER DAY
     Route: 045
     Dates: start: 20080501
  2. NO CONCURRENT MEDICATION [Concomitant]

REACTIONS (3)
  - COUGH [None]
  - DYSPHONIA [None]
  - OROPHARYNGEAL PAIN [None]
